FAERS Safety Report 5591221-3 (Version None)
Quarter: 2008Q1

REPORT INFORMATION
  Report Type: 
  Country: None (occurrence: None)
  Receive Date: 20080115
  Receipt Date: 20070801
  Transmission Date: 20080703
  Serious: No
  Sender: FDA-Public Use
  Company Number: US-ABBOTT-07P-163-0376947-00

PATIENT
  Sex: Male
  Weight: 77.18 kg

DRUGS (2)
  1. HYTRIN [Suspect]
     Indication: PROSTATIC DISORDER
     Dates: start: 19890101, end: 20050101
  2. HYTRIN [Suspect]
     Dates: start: 20070101, end: 20070101

REACTIONS (1)
  - DRUG INEFFECTIVE [None]
